FAERS Safety Report 4521616-8 (Version None)
Quarter: 2004Q4

REPORT INFORMATION
  Report Type: 
  Country: None (occurrence: None)
  Receive Date: 20041209
  Receipt Date: 20041129
  Transmission Date: 20050328
  Serious: Yes (Other)
  Sender: FDA-Public Use
  Company Number: US-JNJFOC-20041105212

PATIENT
  Sex: Female
  Weight: 82.56 kg

DRUGS (27)
  1. REMICADE [Suspect]
     Route: 042
  2. REMICADE [Suspect]
     Route: 042
  3. REMICADE [Suspect]
     Indication: RHEUMATOID ARTHRITIS
     Dosage: FIRST INFUSION
     Route: 042
  4. PREDNISONE [Concomitant]
     Dosage: 10MG ALTERNATING 7.5MG
  5. METHOTREXATE [Concomitant]
  6. CELEBREX [Concomitant]
  7. FOSAMAX [Concomitant]
  8. FOLIC ACID [Concomitant]
  9. PRILOSEC [Concomitant]
  10. CYTOTEC [Concomitant]
  11. LEUCOVORIN [Concomitant]
     Dosage: 1/2 TAB EVERY EVENING.
  12. OSCAL [Concomitant]
  13. K-DUR [Concomitant]
  14. ATENOLOL [Concomitant]
  15. VITAMIN E [Concomitant]
  16. COUMADIN [Concomitant]
  17. MULTI-VITAMIN [Concomitant]
  18. MULTI-VITAMIN [Concomitant]
  19. MULTI-VITAMIN [Concomitant]
  20. MULTI-VITAMIN [Concomitant]
  21. MULTI-VITAMIN [Concomitant]
  22. MULTI-VITAMIN [Concomitant]
  23. MULTI-VITAMIN [Concomitant]
  24. MULTI-VITAMIN [Concomitant]
     Dosage: 2 EVERY DAY.
  25. FLORINEF [Concomitant]
  26. DARVON [Concomitant]
     Dosage: PRN
  27. ARICEPT [Concomitant]

REACTIONS (2)
  - CARDIOMYOPATHY [None]
  - EJECTION FRACTION DECREASED [None]
